FAERS Safety Report 5665018-X (Version None)
Quarter: 2008Q1

REPORT INFORMATION
  Report Type: 
  Country: None (occurrence: None)
  Receive Date: 20080314
  Receipt Date: 20080304
  Transmission Date: 20080703
  Serious: Yes (Other)
  Sender: FDA-Public Use
  Company Number: AT-PFIZER INC-2008020753

PATIENT
  Age: 68 Year
  Sex: Male
  Weight: 75 kg

DRUGS (6)
  1. ZITHROMAX [Suspect]
  2. AVELOX [Suspect]
  3. SPIRIVA [Concomitant]
     Route: 055
  4. TRITTICO [Concomitant]
     Route: 048
  5. PROTHIPENDYL [Concomitant]
     Route: 048
  6. ZIPRASIDONE HCL [Concomitant]
     Route: 048

REACTIONS (1)
  - ATRIAL FIBRILLATION [None]
